FAERS Safety Report 6046415-X (Version None)
Quarter: 2009Q1

REPORT INFORMATION
  Report Type: 
  Country: None (occurrence: None)
  Receive Date: 20090122
  Receipt Date: 20090114
  Transmission Date: 20090719
  Serious: Yes (Other)
  Sender: FDA-Public Use
  Company Number: US-ASTRAZENECA-2009UW01358

PATIENT
  Age: 68 Year
  Sex: Male

DRUGS (3)
  1. SEROQUEL XR [Suspect]
     Indication: BIPOLAR I DISORDER
     Dosage: TITRATED TO 200 XR
     Route: 048
  2. EFFEXOR [Concomitant]
  3. COGENTIN [Concomitant]

REACTIONS (2)
  - SEROTONIN SYNDROME [None]
  - TREMOR [None]
